FAERS Safety Report 9152586 (Version 1)
Quarter: 2013Q1

REPORT INFORMATION
  Report Type: Spontaneous
  Country: US (occurrence: US)
  Receive Date: 20130308
  Receipt Date: 20130308
  Transmission Date: 20140127
  Serious: No
  Sender: FDA-Public Use
  Company Number: US-009507513-1303USA004144

PATIENT
  Sex: Female
  Weight: 68.27 kg

DRUGS (2)
  1. CLARITIN-D 12 HOUR [Suspect]
     Indication: SEASONAL ALLERGY
     Dosage: 5 MG, PRN
     Route: 048
     Dates: start: 201208, end: 201301
  2. CLARITIN-D 12 HOUR [Suspect]
     Indication: MEDICAL OBSERVATION

REACTIONS (2)
  - Abdominal pain upper [Recovered/Resolved]
  - Pain [Recovered/Resolved]
